FAERS Safety Report 19423285 (Version 2)
Quarter: 2022Q1

REPORT INFORMATION
  Report Type: Spontaneous
  Country: US (occurrence: US)
  Receive Date: 20210616
  Receipt Date: 20220128
  Transmission Date: 20220423
  Serious: No
  Sender: FDA-Public Use
  Company Number: US-PFIZER INC-2021302754

PATIENT
  Age: 60 Year
  Sex: Female

DRUGS (2)
  1. IBRANCE [Suspect]
     Active Substance: PALBOCICLIB
     Indication: Breast cancer female
     Dosage: 125 MG, CYCLIC (1 TAB BY MOUTH DAILY 3 WEEKS ON ONE WEEK OFF)
     Route: 048
     Dates: start: 20210318
  2. IBRANCE [Suspect]
     Active Substance: PALBOCICLIB
     Indication: Essential hypertension
     Dosage: 125 MG DAILY FOR 21DAYS THEN 7DAYS OFF
     Route: 048
     Dates: start: 20210224

REACTIONS (6)
  - Off label use [Unknown]
  - Pain [Unknown]
  - Nausea [Unknown]
  - Bone pain [Unknown]
  - Asthenia [Unknown]
  - Confusional state [Not Recovered/Not Resolved]

NARRATIVE: CASE EVENT DATE: 20210101
